FAERS Safety Report 19152402 (Version 1)
Quarter: 2021Q2

REPORT INFORMATION
  Report Type: Spontaneous
  Country: US (occurrence: US)
  Receive Date: 20210416
  Receipt Date: 20210416
  Transmission Date: 20210717
  Serious: Yes (Other)
  Sender: FDA-Public Use
  Company Number: None

PATIENT
  Age: 72 Year
  Sex: Female
  Weight: 67.05 kg

DRUGS (20)
  1. PREGABALIN. [Concomitant]
     Active Substance: PREGABALIN
  2. PROPRANOLOL [Concomitant]
     Active Substance: PROPRANOLOL HYDROCHLORIDE
  3. BIOTIN [Concomitant]
     Active Substance: BIOTIN
  4. REPLACEMENT AORTIC VALVE [Concomitant]
  5. PRESEVISION [Concomitant]
  6. PRAMIPEXOLE. [Concomitant]
     Active Substance: PRAMIPEXOLE
  7. HYDROCHLOROTHIAZIDE. [Concomitant]
     Active Substance: HYDROCHLOROTHIAZIDE
  8. CARVEDILOL. [Concomitant]
     Active Substance: CARVEDILOL
  9. CARVEDILOL. [Concomitant]
     Active Substance: CARVEDILOL
  10. ATORVASTATIN [Concomitant]
     Active Substance: ATORVASTATIN
  11. COENZYME Q10 [Concomitant]
     Active Substance: DIETARY SUPPLEMENT\UBIDECARENONE
  12. TUMERIC [Concomitant]
     Active Substance: HERBALS\TURMERIC
  13. OTEZLA [Suspect]
     Active Substance: APREMILAST
     Indication: PSORIASIS
     Dosage: QUANTITY:1 TABLET(S);?
     Route: 048
  14. LISINOPRIL. [Concomitant]
     Active Substance: LISINOPRIL
  15. OTEZLA [Concomitant]
     Active Substance: APREMILAST
  16. SUPER B COMPLEX [Concomitant]
     Active Substance: CYANOCOBALAMIN\DEXPANTHENOL\NIACINAMIDE\PYRIDOXINE HYDROCHLORIDE\RIBOFLAVIN 5^-PHOSPHATE SODIUM\THIAMINE HYDROCHLORIDE\VITAMIN B COMPLEX
  17. VITAMIN D3 [Concomitant]
     Active Substance: CHOLECALCIFEROL
  18. GLUCOSAMINE [Concomitant]
     Active Substance: GLUCOSAMINE
  19. APSIRIN [Concomitant]
     Active Substance: ASPIRIN
  20. FISH OIL [Concomitant]
     Active Substance: FISH OIL

REACTIONS (1)
  - Blood pressure increased [None]

NARRATIVE: CASE EVENT DATE: 20210414
